FAERS Safety Report 5096459-X (Version None)
Quarter: 2006Q3

REPORT INFORMATION
  Report Type: 
  Country: None (occurrence: None)
  Receive Date: 20060830
  Receipt Date: 20060815
  Transmission Date: 20061208
  Serious: Yes (Hospitalization)
  Sender: FDA-Public Use
  Company Number: TNZUK200600092

PATIENT
  Age: 85 Year
  Sex: Female

DRUGS (17)
  1. INNOHEP [Suspect]
     Indication: THROMBOSIS PROPHYLAXIS
     Dosage: 4500 IU, SUBCUTANEOUS
     Route: 058
     Dates: start: 20041214, end: 20050110
  2. ASPIRIN [Suspect]
     Dosage: 75 MG (75 MG, ONCE DAILY), ORAL
     Route: 048
     Dates: start: 20010101, end: 20050110
  3. CITALOPRAM HYDROBROMIDE [Suspect]
     Indication: DEPRESSION
     Dosage: 10 MG (10 MG, ONCE DAILY), ORAL
     Route: 048
     Dates: start: 20041223
  4. ADCAL-D3 (LEKOVIT CA) [Concomitant]
  5. ALENDRONATE (ALENDRONATE SODIUM) [Concomitant]
  6. BENDROFLUAZIDE (BENDROFLUMETHIAZIDE) [Concomitant]
  7. BETAXOLOL [Concomitant]
  8. BRIMONIDINE (BRIMONIDINE) [Concomitant]
  9. FERROUS SULFATE TAB [Concomitant]
  10. LATANOPROST [Concomitant]
  11. ACETAMINOPHEN [Concomitant]
  12. PERINDOPRIL ERBUMINE [Concomitant]
  13. QUININE SULFATE [Concomitant]
  14. SENNA (SENNA) [Concomitant]
  15. SIMVASTATIN [Concomitant]
  16. SODIUM DOCUSATE (DOCUSATE SODIUM) [Concomitant]
  17. TRAMADOL HCL [Concomitant]

REACTIONS (4)
  - DEPRESSION [None]
  - DUODENAL ULCER [None]
  - GASTROINTESTINAL HAEMORRHAGE [None]
  - HELICOBACTER INFECTION [None]
